FAERS Safety Report 8032475-3 (Version None)
Quarter: 2012Q1

REPORT INFORMATION
  Report Type: 
  Country: None (occurrence: None)
  Receive Date: 20120110
  Receipt Date: 20120106
  Transmission Date: 20120608
  Serious: Yes (Other)
  Sender: FDA-Public Use
  Company Number: SI-AMGEN-SVNSP2012001021

PATIENT
  Sex: Female

DRUGS (1)
  1. NPLATE [Suspect]
     Indication: OFF LABEL USE

REACTIONS (1)
  - THROMBOSIS [None]
